FAERS Safety Report 8524361-7 (Version None)
Quarter: 2012Q3

REPORT INFORMATION
  Report Type: 
  Country: None (occurrence: None)
  Receive Date: 20120720
  Receipt Date: 20120711
  Transmission Date: 20120928
  Serious: Yes (Other)
  Sender: FDA-Public Use
  Company Number: US-ASTRAZENECA-2012SE48208

PATIENT
  Age: 53 Year
  Sex: Female
  Weight: 72.1 kg

DRUGS (18)
  1. XANAX [Concomitant]
  2. ASPIRIN [Concomitant]
  3. TYLENOL WITH VICIDON [Concomitant]
  4. PAXIL [Concomitant]
  5. TOPROL-XL [Suspect]
     Route: 048
     Dates: start: 19990101
  6. TOPROL-XL [Suspect]
     Indication: BLOOD PRESSURE ABNORMAL
     Route: 048
  7. TOPROL-XL [Suspect]
     Route: 048
  8. NEXIUM [Suspect]
     Indication: HIATUS HERNIA
     Route: 048
  9. NEXIUM [Suspect]
     Indication: GASTROOESOPHAGEAL REFLUX DISEASE
     Route: 048
  10. TOPROL-XL [Suspect]
     Route: 048
     Dates: start: 19990101
  11. GARLIC OIL [Concomitant]
  12. TRICOR [Concomitant]
  13. FISH OIL [Concomitant]
  14. ZETIA [Concomitant]
  15. TOPROL-XL [Suspect]
     Indication: MITRAL VALVE PROLAPSE
     Route: 048
  16. TOPROL-XL [Suspect]
     Route: 048
  17. FIBER [Concomitant]
  18. SIMVASTATIN [Concomitant]

REACTIONS (9)
  - SPINAL HAEMANGIOMA [None]
  - PALPITATIONS [None]
  - OFF LABEL USE [None]
  - SPINAL FRACTURE [None]
  - HYPERTENSION [None]
  - BLOOD CHOLESTEROL INCREASED [None]
  - HYPOAESTHESIA [None]
  - BLOOD CHOLESTEROL ABNORMAL [None]
  - CHEST PAIN [None]
